FAERS Safety Report 12918004 (Version 2)
Quarter: 2016Q4

REPORT INFORMATION
  Report Type: Spontaneous
  Country: US (occurrence: US)
  Receive Date: 20161107
  Receipt Date: 20161107
  Transmission Date: 20170207
  Serious: No
  Sender: FDA-Public Use
  Company Number: US-ALLERGAN-1657151US

PATIENT
  Age: 82 Year
  Sex: Male

DRUGS (7)
  1. RAPAFLO [Suspect]
     Active Substance: SILODOSIN
     Dosage: UNK
  2. RAPAFLO [Suspect]
     Active Substance: SILODOSIN
     Dosage: UNK
  3. RAPAFLO [Suspect]
     Active Substance: SILODOSIN
     Dosage: UNK
  4. RAPAFLO [Suspect]
     Active Substance: SILODOSIN
     Dosage: UNK
  5. RAPAFLO [Suspect]
     Active Substance: SILODOSIN
     Dosage: UNK
  6. RAPAFLO [Suspect]
     Active Substance: SILODOSIN
     Indication: URINARY RETENTION
     Dosage: 1 DF, QD
     Route: 048
     Dates: start: 201511
  7. RAPAFLO [Suspect]
     Active Substance: SILODOSIN
     Indication: URINARY RETENTION
     Dosage: UNK
     Dates: start: 201605

REACTIONS (5)
  - Balance disorder [Unknown]
  - Hypoaesthesia [Not Recovered/Not Resolved]
  - Nasal congestion [Not Recovered/Not Resolved]
  - Pain in extremity [Not Recovered/Not Resolved]
  - Rhinorrhoea [Not Recovered/Not Resolved]

NARRATIVE: CASE EVENT DATE: 201602
